FAERS Safety Report 7298675-5 (Version None)
Quarter: 2011Q1

REPORT INFORMATION
  Report Type: 
  Country: None (occurrence: None)
  Receive Date: 20110207
  Receipt Date: 20110121
  Transmission Date: 20110831
  Serious: Yes (Other)
  Sender: FDA-Public Use
  Company Number: 2011AP000060

PATIENT
  Age: 49 Year
  Sex: Female

DRUGS (2)
  1. MYCOPHENOLATE MOFETIL [Suspect]
     Indication: IMMUNOSUPPRESSION
     Dosage: 500 MG;BID
  2. PREDNISONE TAB [Concomitant]

REACTIONS (8)
  - WEIGHT DECREASED [None]
  - METABOLIC ACIDOSIS [None]
  - HYPOALBUMINAEMIA [None]
  - OESOPHAGITIS ULCERATIVE [None]
  - ANAEMIA [None]
  - HYPOKALAEMIA [None]
  - COLITIS [None]
  - LEUKOPENIA [None]
